FAERS Safety Report 7653846-0 (Version None)
Quarter: 2011Q3

REPORT INFORMATION
  Report Type: 
  Country: None (occurrence: None)
  Receive Date: 20110803
  Receipt Date: 20110719
  Transmission Date: 20111222
  Serious: Yes (Other)
  Sender: FDA-Public Use
  Company Number: TN-WATSON-2011-11892

PATIENT
  Age: 81 Year
  Sex: Male

DRUGS (1)
  1. ALLOPURINOL [Suspect]
     Indication: GOUT
     Dosage: UNK

REACTIONS (6)
  - DERMATITIS BULLOUS [None]
  - RENAL FAILURE ACUTE [None]
  - CELL DEATH [None]
  - ACUTE GENERALISED EXANTHEMATOUS PUSTULOSIS [None]
  - PURPURA [None]
  - CHEILITIS [None]
